FAERS Safety Report 4956752-5 (Version None)
Quarter: 2006Q1

REPORT INFORMATION
  Report Type: 
  Country: None (occurrence: None)
  Receive Date: 20060329
  Receipt Date: 20060104
  Transmission Date: 20060701
  Serious: Yes (Other)
  Sender: FDA-Public Use
  Company Number: FR-ROCHE-431030

PATIENT
  Age: 73 Year
  Sex: Male

DRUGS (4)
  1. XENICAL [Suspect]
     Indication: WEIGHT CONTROL
     Route: 065
     Dates: start: 20040415
  2. VISUDYNE [Concomitant]
     Indication: RETINAL DISORDER
     Route: 065
  3. LANZOR [Concomitant]
     Indication: DRUG USE FOR UNKNOWN INDICATION
  4. COZAAR [Concomitant]
     Indication: HYPERTENSION

REACTIONS (4)
  - DIARRHOEA [None]
  - MALAISE [None]
  - NAUSEA [None]
  - SYNCOPE [None]
